FAERS Safety Report 14283604 (Version 2)
Quarter: 2018Q1

REPORT INFORMATION
  Report Type: Report from Study
  Country: CA (occurrence: CA)
  Receive Date: 20171214
  Receipt Date: 20180108
  Transmission Date: 20180509
  Serious: Yes (Hospitalization)
  Sender: FDA-Public Use
  Company Number: CA-JNJFOC-20171205429

PATIENT
  Age: 33 Year
  Sex: Male
  Weight: 73 kg

DRUGS (8)
  1. REMERON [Concomitant]
     Active Substance: MIRTAZAPINE
     Indication: ANTIDEPRESSANT THERAPY
     Dosage: STRENGTH = 15 MG
     Route: 048
     Dates: start: 20171126
  2. STELARA [Suspect]
     Active Substance: USTEKINUMAB
     Indication: CROHN^S DISEASE
     Dosage: STRENGTH = 90 MG
     Route: 058
     Dates: start: 20160331
  3. CELEXA [Concomitant]
     Active Substance: CITALOPRAM HYDROBROMIDE
     Indication: ANTIDEPRESSANT THERAPY
     Route: 048
  4. CELEXA [Concomitant]
     Active Substance: CITALOPRAM HYDROBROMIDE
     Indication: ANTIDEPRESSANT THERAPY
     Dosage: STRENGTH = 40 MG
     Route: 048
     Dates: start: 20171126
  5. ATIVAN [Concomitant]
     Active Substance: LORAZEPAM
     Dosage: STRENGTH = 1 MG
     Route: 048
  6. DILAUDID [Suspect]
     Active Substance: HYDROMORPHONE HYDROCHLORIDE
     Indication: ANALGESIC THERAPY
     Dosage: STRENGTH = 4 MG
     Route: 048
  7. HYDROMORPHONE [Suspect]
     Active Substance: HYDROMORPHONE
     Indication: ANALGESIC THERAPY
     Dosage: STRENGTH = 24 MG
     Route: 048
  8. REMERON [Concomitant]
     Active Substance: MIRTAZAPINE
     Indication: ANTIDEPRESSANT THERAPY
     Dosage: STRENGTH = 15 MG
     Route: 048

REACTIONS (8)
  - Pancreatitis [Unknown]
  - Crohn^s disease [Recovering/Resolving]
  - Weight increased [Unknown]
  - Intestinal obstruction [Recovered/Resolved]
  - Pancreatic abscess [Unknown]
  - Diarrhoea [Recovering/Resolving]
  - Narcotic bowel syndrome [Recovered/Resolved]
  - Depressed mood [Recovered/Resolved]

NARRATIVE: CASE EVENT DATE: 201707
